FAERS Safety Report 6033521-9 (Version None)
Quarter: 2009Q1

REPORT INFORMATION
  Report Type: 
  Country: None (occurrence: None)
  Receive Date: 20090109
  Receipt Date: 20081230
  Transmission Date: 20090719
  Serious: No
  Sender: FDA-Public Use
  Company Number: US-B.I. PHARMACEUTICALS,INC./RIDGEFIELD-2008-BP-18078BP

PATIENT
  Sex: Female

DRUGS (7)
  1. ZANTAC 150 [Suspect]
     Indication: DYSPEPSIA
     Dosage: 150MG
     Route: 048
     Dates: start: 20081116, end: 20081120
  2. ZANTAC 150 [Suspect]
     Indication: GASTROOESOPHAGEAL REFLUX DISEASE
  3. PREMARIN [Concomitant]
  4. POTASSIUM SUPPLEMENT [Concomitant]
  5. ASPIRIN [Concomitant]
  6. PRESERVATION WITH LUTEIN [Concomitant]
  7. HYGROTON [Concomitant]

REACTIONS (1)
  - VOMITING [None]
